FAERS Safety Report 9491956 (Version 1)
Quarter: 2013Q3

REPORT INFORMATION
  Report Type: Report from Study
  Country: MX (occurrence: MX)
  Receive Date: 20130830
  Receipt Date: 20130830
  Transmission Date: 20140515
  Serious: Yes (Other)
  Sender: FDA-Public Use
  Company Number: MX-SANOFI-AVENTIS-2013SA084866

PATIENT
  Age: 51 Year
  Sex: Female
  Weight: 52 kg

DRUGS (1)
  1. PLAVIX [Suspect]
     Indication: DEEP VEIN THROMBOSIS
     Route: 048
     Dates: start: 201011

REACTIONS (3)
  - Deep vein thrombosis [Recovered/Resolved]
  - Off label use [Not Recovered/Not Resolved]
  - Platelet aggregation [Not Recovered/Not Resolved]
